FAERS Safety Report 4860524-X (Version None)
Quarter: 2005Q4

REPORT INFORMATION
  Report Type: 
  Country: None (occurrence: None)
  Receive Date: 20051216
  Receipt Date: 20051201
  Transmission Date: 20060501
  Serious: Yes (Hospitalization)
  Sender: FDA-Public Use
  Company Number: MEDI-0003859

PATIENT
  Sex: Male

DRUGS (1)
  1. ETHYOL [Suspect]
     Indication: NEOPLASM MALIGNANT

REACTIONS (1)
  - BLISTER [None]
